FAERS Safety Report 12893329 (Version 1)
Quarter: 2016Q4

REPORT INFORMATION
  Report Type: Spontaneous
  Country: US (occurrence: US)
  Receive Date: 20161027
  Receipt Date: 20161027
  Transmission Date: 20170207
  Serious: No
  Sender: FDA-Public Use
  Company Number: None

PATIENT
  Sex: Male

DRUGS (1)
  1. STELARA [Suspect]
     Active Substance: USTEKINUMAB
     Indication: CROHN^S DISEASE
     Dosage: 90 MG EVERY 8 WEEKS SUB-Q
     Route: 058
     Dates: start: 20160829

REACTIONS (3)
  - Back pain [None]
  - Muscle spasms [None]
  - Asthenia [None]
